FAERS Safety Report 7281463-3 (Version None)
Quarter: 2011Q1

REPORT INFORMATION
  Report Type: 
  Country: None (occurrence: None)
  Receive Date: 20110208
  Receipt Date: 20110125
  Transmission Date: 20110831
  Serious: Yes (Other)
  Sender: FDA-Public Use
  Company Number: PHHY2011JP07384

PATIENT
  Age: 52 Year
  Sex: Male

DRUGS (5)
  1. RENIVACE [Concomitant]
  2. NICARDIPINE HYDROCHLORIDE [Concomitant]
  3. GASTER [Concomitant]
  4. ZANTAC [Suspect]
     Dosage: 300 MG, UNK
     Route: 048
     Dates: start: 20101109, end: 20101130
  5. DIOVAN [Suspect]
     Indication: HYPERTENSION
     Dosage: 20 MG, UNK
     Route: 048
     Dates: start: 20101119, end: 20101130

REACTIONS (3)
  - ALANINE AMINOTRANSFERASE INCREASED [None]
  - HEPATIC FUNCTION ABNORMAL [None]
  - ASPARTATE AMINOTRANSFERASE INCREASED [None]
